FAERS Safety Report 13290478 (Version 5)
Quarter: 2017Q3

REPORT INFORMATION
  Report Type: Report from Study
  Country: GB (occurrence: GB)
  Receive Date: 20170303
  Receipt Date: 20170705
  Transmission Date: 20171127
  Serious: Yes (Other)
  Sender: FDA-Public Use
  Company Number: GB-ROCHE-1898165

PATIENT
  Age: 46 Year
  Sex: Female
  Weight: 87.9 kg

DRUGS (18)
  1. CODEINE [Concomitant]
     Active Substance: CODEINE
     Indication: HEPATIC PAIN
     Route: 065
     Dates: start: 20160826
  2. PARACETAMOL [Concomitant]
     Active Substance: ACETAMINOPHEN
     Indication: HEADACHE
     Route: 065
     Dates: start: 20170418
  3. METOCLOPRAMIDE. [Concomitant]
     Active Substance: METOCLOPRAMIDE
     Indication: PROPHYLAXIS
     Route: 065
     Dates: start: 20160826
  4. MORPHINE [Concomitant]
     Active Substance: MORPHINE
     Indication: HEPATIC PAIN
     Route: 065
     Dates: start: 20160826
  5. LOPERAMIDE [Concomitant]
     Active Substance: LOPERAMIDE
     Indication: DIARRHOEA
     Route: 065
     Dates: start: 20160916
  6. NICORETTE COOLS [Concomitant]
     Indication: EX-TOBACCO USER
     Route: 065
     Dates: start: 20160826
  7. FLUCONAZOLE. [Concomitant]
     Active Substance: FLUCONAZOLE
     Indication: CANDIDA INFECTION
     Route: 065
     Dates: start: 20170213
  8. DOCETAXEL. [Suspect]
     Active Substance: DOCETAXEL
     Indication: HER-2 POSITIVE BREAST CANCER
     Dosage: DATE OF MOST RECENT DOSE OF DOCETAXEL PRIOR TO AE ONSET: 13/DEC/2016
     Route: 042
     Dates: start: 20160826
  9. PERTUZUMAB. [Suspect]
     Active Substance: PERTUZUMAB
     Dosage: MAINTENANCE DOSE, DATE OF MOST RECENT DOSE OF HERCEPTIN PRIOR TO AE ONSET: 24/JAN/2017
     Route: 042
  10. DIHYDROCODEINE [Concomitant]
     Active Substance: DIHYDROCODEINE
     Indication: HEADACHE
     Route: 065
     Dates: start: 20170418
  11. PARACETAMOL [Concomitant]
     Active Substance: ACETAMINOPHEN
     Indication: HEPATIC PAIN
     Route: 065
     Dates: start: 20160826
  12. METOCLOPRAMIDE. [Concomitant]
     Active Substance: METOCLOPRAMIDE
     Indication: NAUSEA
     Route: 065
     Dates: start: 20170418
  13. TRASTUZUMAB. [Suspect]
     Active Substance: TRASTUZUMAB
     Indication: HER-2 POSITIVE BREAST CANCER
     Dosage: DATE OF MOST RECENT DOSE OF HERCEPTIN PRIOR TO AE ONSET: 24/JAN/2017
     Route: 058
     Dates: start: 20160826
  14. PERTUZUMAB. [Suspect]
     Active Substance: PERTUZUMAB
     Indication: HER-2 POSITIVE BREAST CANCER
     Dosage: LOADING DOSE
     Route: 042
     Dates: start: 20160826, end: 20160826
  15. CODEINE [Concomitant]
     Active Substance: CODEINE
     Indication: ABDOMINAL PAIN UPPER
  16. MIRTAZAPINE. [Concomitant]
     Active Substance: MIRTAZAPINE
     Indication: DEPRESSION
     Route: 065
     Dates: start: 20170516
  17. DOCUSATE SODIUM. [Concomitant]
     Active Substance: DOCUSATE SODIUM
     Indication: CONSTIPATION
     Route: 065
     Dates: start: 20170213
  18. CO-AMILOFRUSE [Concomitant]
     Active Substance: AMILORIDE\FUROSEMIDE
     Route: 065
     Dates: start: 20170530

REACTIONS (1)
  - Pulmonary embolism [Recovering/Resolving]

NARRATIVE: CASE EVENT DATE: 20170213
